FAERS Safety Report 11088922 (Version 1)
Quarter: 2015Q2

REPORT INFORMATION
  Report Type: Report from Study
  Country: SE (occurrence: SE)
  Receive Date: 20150504
  Receipt Date: 20150504
  Transmission Date: 20150821
  Serious: Yes (Congenital Anomaly)
  Sender: FDA-Public Use
  Company Number: SE-B.I. PHARMACEUTICALS,INC./RIDGEFIELD-2015-BI-22257GD

PATIENT

DRUGS (3)
  1. MULTIVITAMINS [Suspect]
     Active Substance: VITAMINS
     Indication: PRODUCT USED FOR UNKNOWN INDICATION
     Route: 064
  2. SIBUTRAMINE [Suspect]
     Active Substance: SIBUTRAMINE
     Indication: PRODUCT USED FOR UNKNOWN INDICATION
     Route: 064
  3. RANITIDINE [Suspect]
     Active Substance: RANITIDINE\RANITIDINE HYDROCHLORIDE
     Indication: PRODUCT USED FOR UNKNOWN INDICATION
     Route: 064

REACTIONS (1)
  - Skin malformation [Unknown]
